FAERS Safety Report 16926876 (Version 3)
Quarter: 2020Q2

REPORT INFORMATION
  Report Type: Report from Study
  Country: CA (occurrence: CA)
  Receive Date: 20191016
  Receipt Date: 20200517
  Transmission Date: 20200713
  Serious: Yes (Other)
  Sender: FDA-Public Use
  Company Number: PHHY2017CA117259

PATIENT
  Age: 72 Year
  Sex: Female
  Weight: 78.46 kg

DRUGS (10)
  1. ATIVAN [Concomitant]
     Active Substance: LORAZEPAM
     Indication: PRODUCT USED FOR UNKNOWN INDICATION
     Dosage: 1 MG, PRN
     Route: 065
  2. SANDOSTATIN LAR DEPOT [Suspect]
     Active Substance: OCTREOTIDE ACETATE
     Indication: CARCINOID TUMOUR
     Dosage: 30 MG, QMO
     Route: 030
     Dates: start: 20170314
  3. DESAMETASONE [Concomitant]
     Active Substance: DEXAMETHASONE
     Indication: PRODUCT USED FOR UNKNOWN INDICATION
     Dosage: 4 MG, QD
     Route: 065
  4. RAMIPRIL. [Concomitant]
     Active Substance: RAMIPRIL
     Indication: PRODUCT USED FOR UNKNOWN INDICATION
     Dosage: 10 MG, QD
     Route: 065
  5. RAMIPRIL. [Concomitant]
     Active Substance: RAMIPRIL
     Dosage: 5 MG, QD
     Route: 065
  6. PROLIA [Concomitant]
     Active Substance: DENOSUMAB
     Indication: PRODUCT USED FOR UNKNOWN INDICATION
     Dosage: 30 MG, QMO
     Route: 030
     Dates: start: 201805
  7. PROLIA [Concomitant]
     Active Substance: DENOSUMAB
     Dosage: 60 MG
     Route: 030
  8. DIAMICRON [Concomitant]
     Active Substance: GLICLAZIDE
     Indication: PRODUCT USED FOR UNKNOWN INDICATION
     Route: 065
  9. ZOFRON [Concomitant]
     Active Substance: ONDANSETRON
     Indication: PRODUCT USED FOR UNKNOWN INDICATION
     Dosage: 8 MG, PRN
     Route: 065
  10. ELIQUIS [Concomitant]
     Active Substance: APIXABAN
     Indication: PRODUCT USED FOR UNKNOWN INDICATION
     Dosage: 10 MG, BID
     Route: 065
     Dates: start: 201712, end: 2017

REACTIONS (22)
  - Throat cancer [Unknown]
  - Malignant neoplasm progression [Unknown]
  - Asthenia [Unknown]
  - Pulmonary thrombosis [Unknown]
  - Central nervous system lesion [Unknown]
  - Carcinoid tumour [Unknown]
  - Decreased appetite [Unknown]
  - Second primary malignancy [Unknown]
  - Neoplasm malignant [Unknown]
  - Weight decreased [Unknown]
  - Blood glucose decreased [Unknown]
  - Nervousness [Recovering/Resolving]
  - Blood pressure diastolic decreased [Unknown]
  - Nausea [Unknown]
  - Vomiting [Unknown]
  - Intracranial aneurysm [Unknown]
  - Blood pressure systolic increased [Unknown]
  - Mediastinum neoplasm [Unknown]
  - Urinary incontinence [Unknown]
  - Bone density abnormal [Unknown]
  - Bone neoplasm [Recovered/Resolved]
  - Blood pressure systolic decreased [Unknown]

NARRATIVE: CASE EVENT DATE: 2017
